FAERS Safety Report 5271390-5 (Version None)
Quarter: 2007Q1

REPORT INFORMATION
  Report Type: 
  Country: None (occurrence: None)
  Receive Date: 20070321
  Receipt Date: 20070308
  Transmission Date: 20070707
  Serious: Yes (Other)
  Sender: FDA-Public Use
  Company Number: US-ELI_LILLY_AND_COMPANY-US200703001951

PATIENT
  Sex: Female

DRUGS (9)
  1. CYMBALTA [Suspect]
     Indication: DEPRESSION
     Dosage: 30 MG, DAILY (1/D)
     Dates: start: 20070212, end: 20070201
  2. CYMBALTA [Suspect]
     Dosage: 60 MG, DAILY (1/D)
     Dates: start: 20070227, end: 20070306
  3. COUMADIN [Concomitant]
     Dosage: UNK MG, UNK
  4. COUMADIN [Concomitant]
     Dosage: 4 MG, UNK
     Dates: start: 20070201
  5. FISH OIL [Concomitant]
     Dosage: UNK, UNK
     Dates: start: 20070227, end: 20070306
  6. DIOVAN [Concomitant]
  7. ATENOLOL [Concomitant]
  8. LUNESTA [Concomitant]
  9. XANAX [Concomitant]

REACTIONS (3)
  - INTERNATIONAL NORMALISED RATIO INCREASED [None]
  - PROTHROMBIN TIME PROLONGED [None]
  - RASH GENERALISED [None]
